FAERS Safety Report 9729584 (Version 1)
Quarter: 2013Q4

REPORT INFORMATION
  Report Type: Spontaneous
  Country: US (occurrence: US)
  Receive Date: 20131204
  Receipt Date: 20131204
  Transmission Date: 20140711
  Serious: Yes (Other)
  Sender: FDA-Public Use
  Company Number: US-ENDO PHARMACEUTICALS INC.-ZOLP20120052

PATIENT
  Age: 32 Year
  Sex: Female

DRUGS (2)
  1. ZOLPIDEM TARTRATE TABLETS 10MG [Suspect]
     Indication: INSOMNIA
     Route: 048
     Dates: start: 20120331, end: 20120331
  2. ZOLPIDEM TARTRATE TABLETS 10MG [Suspect]
     Route: 048
     Dates: start: 201112, end: 20120330

REACTIONS (2)
  - Somnambulism [Recovered/Resolved]
  - Amnesia [Not Recovered/Not Resolved]
